FAERS Safety Report 10154985 (Version 1)
Quarter: 2014Q2

REPORT INFORMATION
  Report Type: Spontaneous
  Country: US (occurrence: US)
  Receive Date: 20140506
  Receipt Date: 20140506
  Transmission Date: 20141212
  Serious: No
  Sender: FDA-Public Use
  Company Number: US-BAYER-2014-066469

PATIENT
  Age: 89 Year
  Sex: Female
  Weight: 57 kg

DRUGS (10)
  1. ALEVE CAPLET [Suspect]
     Indication: BACK PAIN
     Dosage: 1 DF, BID
     Route: 048
     Dates: start: 20140418
  2. BAYER ASPIRIN SUGAR FREE LOW DOSE ENTERIC [Concomitant]
     Dosage: UNK
  3. ONE A DAY WOMEN^S 50+ HEALTHY ADVANTAGE [Concomitant]
     Dosage: UNK
  4. OMEGA 3 [Concomitant]
     Dosage: 1000 MG, UNK
  5. GLUCOSAMINE SULFATE [Concomitant]
     Dosage: 1500 MG, UNK
  6. FLAX SEED OIL [Concomitant]
     Dosage: 1000 MG, UNK
  7. LOSARTAN [Concomitant]
     Dosage: 100 MG, UNK
  8. PROBIOTICA [Concomitant]
     Dosage: 10 MG, UNK
  9. COQ10 [Concomitant]
     Dosage: 100 MG, UNK
  10. VITAMIN D3 [Concomitant]
     Dosage: 1000 MG, UNK

REACTIONS (1)
  - Incorrect drug administration duration [None]
